FAERS Safety Report 15848300 (Version 2)
Quarter: 2019Q1

REPORT INFORMATION
  Report Type: Spontaneous
  Country: US (occurrence: US)
  Receive Date: 20190121
  Receipt Date: 20190128
  Transmission Date: 20190417
  Serious: No
  Sender: FDA-Public Use
  Company Number: US-PFIZER INC-2019020298

PATIENT
  Age: 57 Year
  Sex: Female

DRUGS (1)
  1. XELJANZ XR [Suspect]
     Active Substance: TOFACITINIB CITRATE
     Dosage: 11 MG, UNK
     Dates: start: 20181120

REACTIONS (6)
  - Rhinorrhoea [Unknown]
  - Chest pain [Unknown]
  - Drug ineffective [Unknown]
  - Nasal congestion [Unknown]
  - Palpitations [Unknown]
  - Vision blurred [Unknown]
